FAERS Safety Report 8565246 (Version 4)
Quarter: 2013Q1

REPORT INFORMATION
  Report Type: Report from Study
  Country: NL (occurrence: NL)
  Receive Date: 20120516
  Receipt Date: 20130320
  Transmission Date: 20140127
  Serious: Yes (Death, Hospitalization)
  Sender: FDA-Public Use
  Company Number: NL-ALEXION-A201200895

PATIENT
  Age: 74 None
  Sex: Male

DRUGS (9)
  1. SOLIRIS [Suspect]
     Indication: PAROXYSMAL NOCTURNAL HAEMOGLOBINURIA
     Dosage: 600 MG, Q2W
     Route: 042
     Dates: start: 20050915, end: 20051012
  2. SOLIRIS [Suspect]
     Dosage: 900 MG, Q2W
     Route: 042
     Dates: start: 20051012, end: 20080118
  3. SOLIRIS [Suspect]
     Dosage: 1200 MG, Q2W
     Route: 042
     Dates: start: 20080118, end: 20120501
  4. SOTALOL [Concomitant]
     Indication: CARDIAC DISORDER
     Dosage: 40 MG, BID
     Route: 048
     Dates: start: 20120210, end: 20120501
  5. PREVENCOR [Concomitant]
     Indication: HYPERCHOLESTEROLAEMIA
     Dosage: 10 MG, QD
     Route: 048
     Dates: start: 201111, end: 20120501
  6. DESFERAL [Concomitant]
     Indication: IRON OVERLOAD
     Dosage: 500 MG 4X1WEEK
     Route: 048
     Dates: start: 20051204, end: 20120501
  7. PYRIDOXINE [Concomitant]
     Indication: VITAMIN SUPPLEMENTATION
     Dosage: 100 MG, UNK
     Route: 048
     Dates: start: 20051116, end: 20120501
  8. TRAMADOL [Concomitant]
     Indication: PAIN
     Dosage: 2X50 MG, UNK
     Route: 048
     Dates: start: 200810, end: 20120501
  9. ACENOCOUMAROL [Concomitant]
     Indication: THROMBOSIS PROPHYLAXIS
     Dosage: UNK
     Route: 048
     Dates: start: 20080806, end: 20120501

REACTIONS (6)
  - Pneumonia [Fatal]
  - Respiratory failure [Fatal]
  - General physical health deterioration [Not Recovered/Not Resolved]
  - Asthenia [Not Recovered/Not Resolved]
  - Decreased appetite [Not Recovered/Not Resolved]
  - Insomnia [Not Recovered/Not Resolved]
